FAERS Safety Report 11745041 (Version 2)
Quarter: 2015Q4

REPORT INFORMATION
  Report Type: Spontaneous
  Country: GB (occurrence: GB)
  Receive Date: 20151117
  Receipt Date: 20151208
  Transmission Date: 20160304
  Serious: Yes (Hospitalization)
  Sender: FDA-Public Use
  Company Number: GB-AUROBINDO-AUR-APL-2015-10049

PATIENT
  Age: 77 Year
  Sex: Male
  Weight: 172 kg

DRUGS (20)
  1. RITUXIMAB [Suspect]
     Active Substance: RITUXIMAB
     Indication: DIFFUSE LARGE B-CELL LYMPHOMA
  2. ASPIRIN. [Concomitant]
     Active Substance: ASPIRIN
     Indication: AORTIC VALVE REPLACEMENT
     Dosage: 75 MG, ONCE A DAY
     Route: 048
     Dates: end: 20150826
  3. FLUCONAZOLE. [Concomitant]
     Active Substance: FLUCONAZOLE
     Indication: ANTIFUNGAL PROPHYLAXIS
     Dosage: 50 MG, ONCE A DAY
     Route: 048
     Dates: start: 20150815, end: 20150826
  4. CYCLOPHOSPHAMIDE. [Suspect]
     Active Substance: CYCLOPHOSPHAMIDE
     Indication: NEOPLASM MALIGNANT
     Dosage: 1400 MG, ONCE A DAY
     Route: 042
     Dates: start: 20150820, end: 20150820
  5. PREDNISOLONE. [Suspect]
     Active Substance: PREDNISOLONE
     Indication: DIFFUSE LARGE B-CELL LYMPHOMA
     Dosage: 100 MG, ONCE A DAY
     Route: 048
     Dates: start: 20150820, end: 20150824
  6. RITUXIMAB [Suspect]
     Active Substance: RITUXIMAB
     Indication: NEOPLASM MALIGNANT
     Dosage: 720 MG, ONCE A DAY
     Route: 042
     Dates: start: 20150820, end: 20150820
  7. DIGOXIN. [Concomitant]
     Active Substance: DIGOXIN
     Indication: ATRIAL FIBRILLATION
     Dosage: 125 ?G, ONCE A DAY
     Route: 048
     Dates: end: 20150826
  8. HYDROXYCHLOROQUINE [Concomitant]
     Active Substance: HYDROXYCHLOROQUINE
     Indication: RHEUMATOID ARTHRITIS
     Dosage: 200 MG, TWO TIMES A DAY
     Dates: start: 20150814, end: 20150826
  9. LEFLUNOMIDE. [Concomitant]
     Active Substance: LEFLUNOMIDE
     Indication: RHEUMATOID ARTHRITIS
     Dosage: 20 MG, ONCE A DAY
     Route: 048
     Dates: start: 201107, end: 20150826
  10. CHLORPHENAMINE [Concomitant]
     Active Substance: CHLORPHENIRAMINE MALEATE
     Indication: PRODUCT USED FOR UNKNOWN INDICATION
     Dosage: 10 MG, ONCE A DAY
     Route: 042
     Dates: start: 20150820, end: 20150820
  11. FUROSEMIDE 40 MG [Suspect]
     Active Substance: FUROSEMIDE
     Indication: CARDIAC DISORDER
     Dosage: 40 MG, ONCE A DAY
     Route: 048
     Dates: end: 20150826
  12. ALLOPURINOL. [Concomitant]
     Active Substance: ALLOPURINOL
     Indication: GOUT
     Dosage: 300 MG, ONCE A DAY
     Route: 048
     Dates: start: 20150815, end: 20150826
  13. OMEPRAZOLE 40MG [Suspect]
     Active Substance: OMEPRAZOLE
     Indication: GASTROINTESTINAL HAEMORRHAGE
     Dosage: 40 MG, ONCE A DAY
     Route: 048
     Dates: end: 20150826
  14. CYCLOPHOSPHAMIDE. [Suspect]
     Active Substance: CYCLOPHOSPHAMIDE
     Indication: DIFFUSE LARGE B-CELL LYMPHOMA
  15. VINCRISTINE [Suspect]
     Active Substance: VINCRISTINE
     Indication: DIFFUSE LARGE B-CELL LYMPHOMA
     Dosage: 2 MG, ONCE A DAY
     Route: 042
     Dates: start: 20150820, end: 20150820
  16. FILGRASTIM [Concomitant]
     Active Substance: FILGRASTIM
     Indication: WHITE BLOOD CELL DISORDER
     Dosage: 300 ?G, DAILY
     Route: 058
     Dates: start: 20150823, end: 20150826
  17. ONDANSETRON [Concomitant]
     Active Substance: ONDANSETRON
     Indication: VOMITING
     Dosage: 8 MG, ONCE A DAY
     Route: 048
     Dates: start: 20150820, end: 20150820
  18. INOTUZUMAB OZOGAMICIN [Suspect]
     Active Substance: INOTUZUMAB OZOGAMICIN
     Indication: DIFFUSE LARGE B-CELL LYMPHOMA
     Dosage: 1.5 MG, ONCE A DAY
     Route: 042
     Dates: start: 20150821
  19. PREDNISOLONE. [Suspect]
     Active Substance: PREDNISOLONE
     Indication: NEOPLASM MALIGNANT
  20. METOCLOPRAMIDE. [Concomitant]
     Active Substance: METOCLOPRAMIDE
     Indication: VOMITING
     Dosage: 10-20 MG AS NEEDED
     Route: 048
     Dates: start: 20150820, end: 20150826

REACTIONS (4)
  - Productive cough [Recovering/Resolving]
  - Hyponatraemia [Recovering/Resolving]
  - Lower respiratory tract infection [Recovered/Resolved]
  - Blood lactic acid increased [Recovering/Resolving]

NARRATIVE: CASE EVENT DATE: 20150825
